FAERS Safety Report 7631898-1 (Version None)
Quarter: 2011Q3

REPORT INFORMATION
  Report Type: 
  Country: None (occurrence: None)
  Receive Date: 20110725
  Receipt Date: 20110506
  Transmission Date: 20111222
  Serious: No
  Sender: FDA-Public Use
  Company Number: US-BRISTOL-MYERS SQUIBB COMPANY-15723612

PATIENT
  Age: 75 Year
  Sex: Female

DRUGS (3)
  1. CRESTOR [Concomitant]
  2. WARFARIN SODIUM [Suspect]
  3. BLOOD PRESSURE PILL [Concomitant]

REACTIONS (1)
  - DIARRHOEA [None]
